FAERS Safety Report 6331654-0 (Version None)
Quarter: 2009Q3

REPORT INFORMATION
  Report Type: 
  Country: None (occurrence: None)
  Receive Date: 20090817
  Receipt Date: 20090223
  Transmission Date: 20100115
  Serious: No
  Sender: FDA-Public Use
  Company Number: 20096329

PATIENT
  Sex: Male
  Weight: 53.4 kg

DRUGS (2)
  1. LIORESAL [Suspect]
     Indication: MUSCLE SPASTICITY
     Dosage: 530 MCG, DAILY, INTRATHECAL - FLES M
     Route: 037
  2. SCOPOLAMINE [Concomitant]

REACTIONS (4)
  - HYPERTONIA [None]
  - PRURITUS [None]
  - SALIVARY HYPERSECRETION [None]
  - WITHDRAWAL SYNDROME [None]
